FAERS Safety Report 20800412 (Version 2)
Quarter: 2022Q2

REPORT INFORMATION
  Report Type: Spontaneous
  Country: US (occurrence: US)
  Receive Date: 20220509
  Receipt Date: 20220526
  Transmission Date: 20220721
  Serious: No
  Sender: FDA-Public Use
  Company Number: US-Ipsen Biopharmaceuticals, Inc.-2022-12156

PATIENT
  Age: 39 Year
  Sex: Male
  Weight: 67 kg

DRUGS (1)
  1. DYSPORT [Suspect]
     Active Substance: ABOBOTULINUMTOXINA
     Indication: Torticollis
     Dosage: 1500 IU
     Route: 030
     Dates: start: 20220111, end: 20220111

REACTIONS (5)
  - Muscle disorder [Unknown]
  - Muscular weakness [Recovering/Resolving]
  - Off label use [Unknown]
  - Prescribed overdose [Unknown]
  - Prescribed overdose [Unknown]

NARRATIVE: CASE EVENT DATE: 20220111
